FAERS Safety Report 9812945 (Version 1)
Quarter: 2014Q1

REPORT INFORMATION
  Report Type: Spontaneous
  Country: US (occurrence: None)
  Receive Date: 20140109
  Receipt Date: 20140109
  Transmission Date: 20141002
  Serious: Yes (Other)
  Sender: FDA-Public Use
  Company Number: None

PATIENT
  Age: 61 Year
  Sex: Female

DRUGS (1)
  1. NEVANAC [Suspect]
     Indication: OPHTHALMOLOGICAL EXAMINATION
     Dates: start: 20131213, end: 20131213

REACTIONS (1)
  - Eye irritation [None]
